FAERS Safety Report 18058320 (Version 1)
Quarter: 2020Q3

REPORT INFORMATION
  Report Type: Spontaneous
  Country: US (occurrence: US)
  Receive Date: 20200723
  Receipt Date: 20200723
  Transmission Date: 20201103
  Serious: No
  Sender: FDA-Public Use
  Company Number: US-GLENMARK PHARMACEUTICALS-2020GMK048458

PATIENT

DRUGS (2)
  1. ADAPALENE GEL USP, 0.1 % [Suspect]
     Active Substance: ADAPALENE
     Indication: ACNE
     Dosage: UNK, HS (NIGHTLY: 1XDAY)
     Route: 061
     Dates: start: 202005, end: 202006
  2. ADAPALENE GEL USP, 0.1 % [Suspect]
     Active Substance: ADAPALENE
     Dosage: UNK; TWICE WEEKLY
     Route: 061
     Dates: start: 202006

REACTIONS (1)
  - Milia [Not Recovered/Not Resolved]

NARRATIVE: CASE EVENT DATE: 202006
